FAERS Safety Report 21610424 (Version 1)
Quarter: 2022Q4

REPORT INFORMATION
  Report Type: Spontaneous
  Country: CN (occurrence: CN)
  Receive Date: 20221117
  Receipt Date: 20221117
  Transmission Date: 20230113
  Serious: Yes (Other)
  Sender: FDA-Public Use
  Company Number: CN-BAYER-2022A159516

PATIENT
  Age: 53 Year
  Sex: Female
  Weight: 54 kg

DRUGS (2)
  1. ULTRAVIST [Suspect]
     Active Substance: IOPROMIDE
     Indication: Computerised tomogram abdomen
     Dosage: 90 ML, ONCE
     Route: 042
     Dates: start: 20221002, end: 20221002
  2. ULTRAVIST [Suspect]
     Active Substance: IOPROMIDE
     Indication: Intestinal mass

REACTIONS (6)
  - Amaurosis [Recovering/Resolving]
  - Hypoaesthesia [Recovering/Resolving]
  - Muscular weakness [Recovering/Resolving]
  - Hypoaesthesia oral [Recovering/Resolving]
  - Vomiting [Recovering/Resolving]
  - Blood pressure diastolic increased [Recovering/Resolving]

NARRATIVE: CASE EVENT DATE: 20221002
